FAERS Safety Report 20572445 (Version 1)
Quarter: 2022Q1

REPORT INFORMATION
  Report Type: Report from Study
  Country: US (occurrence: US)
  Receive Date: 20220309
  Receipt Date: 20220309
  Transmission Date: 20220424
  Serious: Yes (Other)
  Sender: FDA-Public Use
  Company Number: US-PFIZER INC-202200339637

PATIENT

DRUGS (3)
  1. ENCORAFENIB [Suspect]
     Active Substance: ENCORAFENIB
     Indication: Colorectal cancer metastatic
     Dosage: 300 MG, DAILY
     Route: 048
  2. CETUXIMAB [Suspect]
     Active Substance: CETUXIMAB
     Indication: Colorectal cancer metastatic
     Dosage: 500 MG/M2 (Q 14 DAYS)
     Route: 042
  3. NIVOLUMAB [Suspect]
     Active Substance: NIVOLUMAB
     Indication: Colorectal cancer metastatic
     Dosage: 480 MG (Q 28 DAYS)
     Route: 042

REACTIONS (2)
  - Myocarditis [Unknown]
  - Myositis [Unknown]
